FAERS Safety Report 10273534 (Version 2)
Quarter: 2015Q1

REPORT INFORMATION
  Report Type: Spontaneous
  Country: FR (occurrence: None)
  Receive Date: 20140630
  Receipt Date: 20150107
  Transmission Date: 20150720
  Serious: Yes (Hospitalization)
  Sender: FDA-Public Use
  Company Number: FK201402501

PATIENT
  Age: 81 Year
  Sex: Female

DRUGS (13)
  1. LEVOTHYROX (LEVOTHYROXINE SODIUM) [Concomitant]
     Active Substance: LEVOTHYROXINE SODIUM
  2. SPECIAFOLIDINE(FOLIC ACID) [Concomitant]
  3. OFLOXACINE [Suspect]
     Active Substance: OFLOXACIN
     Indication: COLITIS ISCHAEMIC
     Dosage: INTRAVENOUS (NOT OTHERWISE SPECIFIED)?
     Route: 042
     Dates: start: 20140520
  4. TAHOR [Concomitant]
     Active Substance: ATORVASTATIN CALCIUM
  5. BISO CE)BISOPROLOL FUMARATE) [Concomitant]
  6. VANCOMYCINE SANDOZ [Suspect]
     Active Substance: VANCOMYCIN
     Indication: COLITIS ISCHAEMIC
     Dosage: INTRAVENOUS (NOT OTHERWISE SPECIFIED)?
     Route: 042
     Dates: start: 20140528, end: 20140602
  7. ODRIK (TRANDOLAPRIL) [Concomitant]
  8. DIFFU K (POTASSIUM CHLORIDE) (POTASSIUM CHLORIDE) [Concomitant]
     Active Substance: POTASSIUM CHLORIDE
  9. LASILIX (FUROSEMIDE) [Concomitant]
     Active Substance: FUROSEMIDE
  10. PIPERACILLIN AND TAZOBACTAM [Suspect]
     Active Substance: PIPERACILLIN SODIUM\TAZOBACTAM SODIUM
     Indication: COLITIS ISCHAEMIC
     Dosage: INTRAVENOUS (NOT OTHERWISE SPECIFIED)
     Route: 042
     Dates: start: 20140523, end: 20140602
  11. LYRICA (PREGABLIN) [Concomitant]
  12. KARDEGIC(ACETYL SALYCILATE LYSINE) [Concomitant]
  13. METRONIDAZOLE. [Suspect]
     Active Substance: METRONIDAZOLE
     Indication: COLITIS ISCHAEMIC
     Dosage: INTRAVENOUS (NOT OTHERWISE SPECIFIED)?
     Route: 042
     Dates: start: 20140520, end: 20140602

REACTIONS (3)
  - Eosinophilia [None]
  - Acute kidney injury [None]
  - Pyrexia [None]

NARRATIVE: CASE EVENT DATE: 20140602
